FAERS Safety Report 6017990-6 (Version None)
Quarter: 2008Q4

REPORT INFORMATION
  Report Type: 
  Country: None (occurrence: None)
  Receive Date: 20081223
  Receipt Date: 20081219
  Transmission Date: 20090506
  Serious: Yes (Death, Hospitalization)
  Sender: FDA-Public Use
  Company Number: B0421357A

PATIENT
  Age: 24 Year
  Sex: Female

DRUGS (6)
  1. FLOLAN [Suspect]
     Indication: PULMONARY THROMBOSIS
     Route: 042
     Dates: start: 20040310, end: 20080915
  2. SILDENAFIL CITRATE [Concomitant]
     Route: 048
  3. FUROSEMIDE [Concomitant]
     Route: 042
  4. ALBUMIN (HUMAN) [Concomitant]
     Route: 042
  5. FULCALIQ [Concomitant]
     Route: 042
  6. CORTRIL [Concomitant]
     Route: 048

REACTIONS (7)
  - CELLULITIS [None]
  - DIARRHOEA [None]
  - GAMMA-GLUTAMYLTRANSFERASE INCREASED [None]
  - HYPOALBUMINAEMIA [None]
  - ISOLATED ADRENOCORTICOTROPIC HORMONE DEFICIENCY [None]
  - RIGHT VENTRICULAR FAILURE [None]
  - WEIGHT INCREASED [None]
